FAERS Safety Report 8379483-0 (Version None)
Quarter: 2012Q1

REPORT INFORMATION
  Report Type: 
  Country: None (occurrence: None)
  Receive Date: 20120323
  Receipt Date: 20110407
  Transmission Date: 20120608
  Serious: Yes (Other)
  Sender: FDA-Public Use
  Company Number: 163-21880-11030993

PATIENT
  Age: 74 Year
  Sex: Female
  Weight: 64.4108 kg

DRUGS (5)
  1. EXJADE (DEFERASIROX) (UNKNOWN) [Concomitant]
  2. ACETAMINOPHEN [Concomitant]
  3. ANTIBIOTICS (ANTIBIOTICS) (UNKNOWN) [Concomitant]
  4. REVLIMID [Suspect]
     Indication: MYELODYSPLASTIC SYNDROME
     Dosage: 10 MG, DAILY X 21 DAYS, PO 5 MG, DAILY X 21 DAYS, PO
     Route: 048
     Dates: start: 20090201
  5. REVLIMID [Suspect]
     Indication: MYELODYSPLASTIC SYNDROME
     Dosage: 10 MG, DAILY X 21 DAYS, PO 5 MG, DAILY X 21 DAYS, PO
     Route: 048
     Dates: start: 20100301

REACTIONS (3)
  - DEPRESSION [None]
  - DIARRHOEA [None]
  - ASTHENIA [None]
